FAERS Safety Report 7956453-5 (Version None)
Quarter: 2011Q4

REPORT INFORMATION
  Report Type: 
  Country: None (occurrence: None)
  Receive Date: 20111205
  Receipt Date: 20111125
  Transmission Date: 20120403
  Serious: Yes (Hospitalization, Other)
  Sender: FDA-Public Use
  Company Number: US-ASTELLAS-2011US007867

PATIENT
  Sex: Male
  Weight: 55 kg

DRUGS (2)
  1. LORTAB [Concomitant]
     Indication: PRODUCT USED FOR UNKNOWN INDICATION
     Dosage: PRN
     Route: 065
  2. TARCEVA [Suspect]
     Indication: NON-SMALL CELL LUNG CANCER
     Dosage: 150 MG, UID/QD
     Route: 048
     Dates: start: 20110812, end: 20111117

REACTIONS (8)
  - WEIGHT DECREASED [None]
  - PAIN IN EXTREMITY [None]
  - ORAL PAIN [None]
  - BLOOD POTASSIUM ABNORMAL [None]
  - INSOMNIA [None]
  - INTERNATIONAL NORMALISED RATIO ABNORMAL [None]
  - BLOOD CALCIUM ABNORMAL [None]
  - DECREASED APPETITE [None]
